FAERS Safety Report 18612716 (Version 2)
Quarter: 2021Q1

REPORT INFORMATION
  Report Type: Report from Study
  Country: US (occurrence: US)
  Receive Date: 20201214
  Receipt Date: 20210201
  Transmission Date: 20210419
  Serious: Yes (Death, Other)
  Sender: FDA-Public Use
  Company Number: US-EXELIXIS-CABO-20034245

PATIENT
  Age: 79 Year
  Sex: Male

DRUGS (3)
  1. CABOMETYX [Suspect]
     Active Substance: CABOZANTINIB S-MALATE
     Dosage: 20 MG,QD
     Dates: end: 20201111
  2. CABOMETYX [Suspect]
     Active Substance: CABOZANTINIB S-MALATE
     Dosage: 20 MG,QD (5 DAYS WITH 2 DAYS OFF)
     Dates: start: 20201116
  3. CABOMETYX [Suspect]
     Active Substance: CABOZANTINIB S-MALATE
     Indication: RENAL CELL CARCINOMA
     Dosage: 20 MG, QD
     Route: 048
     Dates: start: 20200929

REACTIONS (12)
  - Fall [Recovered/Resolved]
  - Depression [Unknown]
  - Decreased appetite [Not Recovered/Not Resolved]
  - Weight decreased [Not Recovered/Not Resolved]
  - Constipation [Not Recovered/Not Resolved]
  - Inappropriate schedule of product administration [Unknown]
  - Taste disorder [Unknown]
  - Cerebrovascular accident [Unknown]
  - Death [Fatal]
  - Nausea [Not Recovered/Not Resolved]
  - Product dose omission issue [Unknown]
  - Fatigue [Unknown]

NARRATIVE: CASE EVENT DATE: 20201116
